FAERS Safety Report 6233837-7 (Version None)
Quarter: 2009Q2

REPORT INFORMATION
  Report Type: 
  Country: None (occurrence: None)
  Receive Date: 20090618
  Receipt Date: 20090428
  Transmission Date: 20091009
  Serious: No
  Sender: FDA-Public Use
  Company Number: A0775367A

PATIENT
  Age: 65 Year
  Sex: Male

DRUGS (6)
  1. PROMACTA [Suspect]
     Indication: IDIOPATHIC THROMBOCYTOPENIC PURPURA
     Dosage: 50MG PER DAY
     Route: 048
     Dates: start: 20090304
  2. PREDNISONE [Concomitant]
  3. FLOMAX [Concomitant]
  4. BENICAR [Concomitant]
  5. FUROSEMIDE [Concomitant]
  6. WELCHOL [Concomitant]

REACTIONS (1)
  - PLATELET COUNT DECREASED [None]
